FAERS Safety Report 8622571-1 (Version None)
Quarter: 2012Q3

REPORT INFORMATION
  Report Type: 
  Country: None (occurrence: None)
  Receive Date: 20120809
  Receipt Date: 20120725
  Transmission Date: 20120928
  Serious: Yes (Hospitalization, Other)
  Sender: FDA-Public Use
  Company Number: 2012-000516

PATIENT
  Age: 62 Year
  Sex: Female

DRUGS (33)
  1. ACTONEL [Suspect]
     Indication: OSTEOPOROSIS
     Dosage: 35 MG ONCE WEEKLY, ORAL
     Route: 048
     Dates: start: 20041110, end: 20080613
  2. ACTONEL [Suspect]
     Indication: OSTEOPENIA
     Dosage: 35 MG ONCE WEEKLY, ORAL
     Route: 048
     Dates: start: 20041110, end: 20080613
  3. METHOCARBAMOL [Concomitant]
  4. AMOXICILLIN [Concomitant]
  5. FOSAMAX [Suspect]
     Indication: OSTEOPOROSIS
     Dosage: ORAL
     Route: 048
  6. FOSAMAX [Suspect]
     Indication: OSTEOPENIA
     Dosage: ORAL
     Route: 048
  7. LYRICA [Concomitant]
  8. NEXIUM [Concomitant]
  9. CELEBREX [Concomitant]
  10. PSEUDOVENT (GUAIFENESIN, PSEUDOEPHEDRINE HYDROCHLORIDE) [Concomitant]
  11. KETOCONAZOLE [Concomitant]
  12. TAMIFLU [Concomitant]
  13. ZOLOFT [Concomitant]
  14. CEFUROXIME [Concomitant]
  15. TRAMADOL HCL [Concomitant]
  16. HYDROCODONE BITARTRATE W/IBUPROFEN (HYDROCODONE BITARTRATE, IBUPROFEN) [Concomitant]
  17. ZETIA [Concomitant]
  18. FLUTICASONE PROPIONATE [Concomitant]
  19. CYMBALTA [Concomitant]
  20. SKELAXIN /00611501/ (METAXALONE) [Concomitant]
  21. HYDROCODONE W/APAP (HYDROCODONE, PARACETAMOL) [Concomitant]
  22. CALTRATE + D /00944201/ (CALCIUM CARBONATE, COLECALCIFEROL) [Concomitant]
  23. ALENDRONATE SODIUM [Suspect]
     Indication: OSTEOPOROSIS
     Dosage: 70 MG ONCE WEEKLY, ORAL
     Route: 048
     Dates: start: 20080617, end: 20111001
  24. ALENDRONATE SODIUM [Suspect]
     Indication: OSTEOPENIA
     Dosage: 70 MG ONCE WEEKLY, ORAL
     Route: 048
     Dates: start: 20080617, end: 20111001
  25. NABUMETONE [Concomitant]
  26. METOCLOPRAMIDE [Concomitant]
  27. MOMETASONE FUROATE [Concomitant]
  28. TRICOR /00499301/ (FENOFIBRATE) [Concomitant]
  29. ACIPHEX [Concomitant]
  30. AZITHROMYCIN [Concomitant]
  31. PREDNISONE TAB [Concomitant]
  32. MEDROXYPROGESTERONE [Concomitant]
  33. ZYRTEC [Concomitant]

REACTIONS (10)
  - MUSCULAR WEAKNESS [None]
  - GAIT DISTURBANCE [None]
  - MUSCULOSKELETAL DISORDER [None]
  - STRESS FRACTURE [None]
  - FRACTURE DELAYED UNION [None]
  - FEMUR FRACTURE [None]
  - FRACTURE DISPLACEMENT [None]
  - ARTHRALGIA [None]
  - PAIN IN EXTREMITY [None]
  - FOOT FRACTURE [None]
